FAERS Safety Report 6980026-4 (Version None)
Quarter: 2010Q3

REPORT INFORMATION
  Report Type: 
  Country: None (occurrence: None)
  Receive Date: 20100914
  Receipt Date: 20100902
  Transmission Date: 20110219
  Serious: Yes (Other)
  Sender: FDA-Public Use
  Company Number: JP-PFIZER INC-2010110627

PATIENT

DRUGS (1)
  1. GENOTROPIN [Suspect]
     Dosage: 1.0 MG, 1X/DAY
     Route: 058

REACTIONS (1)
  - SWELLING FACE [None]
